FAERS Safety Report 9551956 (Version 1)
Quarter: 2013Q3

REPORT INFORMATION
  Report Type: Spontaneous
  Country: US (occurrence: None)
  Receive Date: 20130724
  Receipt Date: 20130724
  Transmission Date: 20140515
  Serious: Yes (Hospitalization, Other)
  Sender: FDA-Public Use
  Company Number: PHEH2012US025090

PATIENT
  Age: 90 Year
  Sex: Female

DRUGS (9)
  1. GLEEVEC [Suspect]
     Indication: CHRONIC MYELOID LEUKAEMIA
     Route: 048
     Dates: start: 201206, end: 201211
  2. CORGARD (NADOLOL) [Concomitant]
  3. CRESTOR (ROSUVASTATIN CALCIUM) [Concomitant]
  4. LASIX (FUROSEMIDE) [Concomitant]
  5. POTASIUM M (POTASSIUM) [Concomitant]
  6. PRADAXA (DABIGATRAN ETEXILATE MESILATE) [Concomitant]
  7. PRILOSEC [Concomitant]
  8. ZOFRAN (ONDANSETRON HYDROCHLORIDE) [Concomitant]
  9. TASIGNA (NILOTINIB HYDROCHLORIDE) [Concomitant]

REACTIONS (3)
  - Pericardial effusion [None]
  - Pleural effusion [None]
  - Drug ineffective [None]
